FAERS Safety Report 19835020 (Version 1)
Quarter: 2021Q3

REPORT INFORMATION
  Report Type: Report from Study
  Country: BR (occurrence: BR)
  Receive Date: 20210915
  Receipt Date: 20210915
  Transmission Date: 20211014
  Serious: No
  Sender: FDA-Public Use
  Company Number: BR-JNJFOC-20210918686

PATIENT
  Age: 31 Year
  Sex: Male

DRUGS (3)
  1. AZATHIOPRINE. [Concomitant]
     Active Substance: AZATHIOPRINE
     Indication: PRODUCT USED FOR UNKNOWN INDICATION
  2. PREDNISONE. [Concomitant]
     Active Substance: PREDNISONE
     Indication: PRODUCT USED FOR UNKNOWN INDICATION
  3. REMICADE [Suspect]
     Active Substance: INFLIXIMAB
     Indication: CROHN^S DISEASE
     Dosage: 0,2,6 WEEKS
     Route: 042
     Dates: start: 20210729

REACTIONS (5)
  - Abdominal pain [Unknown]
  - Eye pain [Unknown]
  - Asthenia [Unknown]
  - Biopsy site unspecified abnormal [Unknown]
  - Dizziness [Unknown]
